FAERS Safety Report 9089841 (Version 1)
Quarter: 2013Q1

REPORT INFORMATION
  Report Type: Report from Study
  Country: US (occurrence: US)
  Receive Date: 20130201
  Receipt Date: 20130201
  Transmission Date: 20140127
  Serious: No
  Sender: FDA-Public Use
  Company Number: US-ABBOTT-12P-163-1025706-00

PATIENT
  Age: 47 None
  Sex: Female
  Weight: 68.1 kg

DRUGS (21)
  1. HUMIRA [Suspect]
     Indication: COLITIS ULCERATIVE
     Dates: start: 20121116, end: 20121212
  2. HUMIRA [Suspect]
     Indication: BEHCET^S SYNDROME
  3. VICODIN [Concomitant]
     Indication: ARTHRALGIA
  4. FOLIC ACID [Concomitant]
     Indication: SUPPLEMENTATION THERAPY
  5. HYDROCHLOROTHIAZIDE [Concomitant]
     Indication: PRODUCT USED FOR UNKNOWN INDICATION
  6. METHOCARBAMOL [Concomitant]
     Indication: PRODUCT USED FOR UNKNOWN INDICATION
  7. NEURONTIN [Concomitant]
     Indication: PRODUCT USED FOR UNKNOWN INDICATION
  8. LISINOPRIL [Concomitant]
     Indication: HYPERTENSION
  9. ASACOL [Concomitant]
     Indication: COLITIS ULCERATIVE
  10. NEXIUM [Concomitant]
     Indication: GASTROOESOPHAGEAL REFLUX DISEASE
  11. PAXIL [Concomitant]
     Indication: DEPRESSION
  12. QVAR [Concomitant]
     Indication: PRODUCT USED FOR UNKNOWN INDICATION
  13. ALBUTEROL SULFATE [Concomitant]
     Indication: PRODUCT USED FOR UNKNOWN INDICATION
  14. CYCLOSPORINE [Concomitant]
     Indication: BEHCET^S SYNDROME
  15. METHOTARDANOL [Concomitant]
     Indication: FIBROMYALGIA
  16. HYDROXYCHLOROQUINE [Concomitant]
     Indication: BEHCET^S SYNDROME
  17. GABAPENTIN [Concomitant]
     Indication: HEADACHE
  18. SAVELLA [Concomitant]
     Indication: FIBROMYALGIA
  19. TEVAR [Concomitant]
     Indication: CHRONIC OBSTRUCTIVE PULMONARY DISEASE
  20. PROAIR [Concomitant]
     Indication: CHRONIC OBSTRUCTIVE PULMONARY DISEASE
  21. ALLERGY SHOTS [Concomitant]
     Indication: HYPERSENSITIVITY

REACTIONS (15)
  - Off label use [Unknown]
  - Alopecia [Unknown]
  - Erythema [Unknown]
  - Skin exfoliation [Unknown]
  - Pruritus [Unknown]
  - Pain of skin [Unknown]
  - Erythema [Unknown]
  - Skin exfoliation [Unknown]
  - Pruritus [Unknown]
  - Pain of skin [Unknown]
  - Influenza [Unknown]
  - Unevaluable event [Unknown]
  - Rash [Recovered/Resolved]
  - Psoriasis [Not Recovered/Not Resolved]
  - Nasopharyngitis [Unknown]
